FAERS Safety Report 5084740-X (Version None)
Quarter: 2006Q3

REPORT INFORMATION
  Report Type: 
  Country: None (occurrence: None)
  Receive Date: 20060815
  Receipt Date: 20060807
  Transmission Date: 20061208
  Serious: Yes (Life-Threatening)
  Sender: FDA-Public Use
  Company Number: S06-NLD-02883-01

PATIENT
  Age: 75 Year
  Sex: Female

DRUGS (4)
  1. LEXAPRO [Suspect]
     Indication: DEPRESSION
     Dosage: 20 MG QD PO
     Route: 048
     Dates: start: 20060203, end: 20060614
  2. PANTOZOL (PANTOPRAZOLE SODIUM) [Concomitant]
  3. SALBUTAMOL AER (SALBUTAMOL) [Concomitant]
  4. SERETIDE AEROSOL [Concomitant]

REACTIONS (3)
  - CARDIAC FAILURE [None]
  - DIASTOLIC DYSFUNCTION [None]
  - ELECTROCARDIOGRAM QT PROLONGED [None]
